FAERS Safety Report 5318511-3 (Version None)
Quarter: 2007Q2

REPORT INFORMATION
  Report Type: 
  Country: None (occurrence: None)
  Receive Date: 20070501
  Receipt Date: 20070416
  Transmission Date: 20071010
  Serious: Yes (Hospitalization)
  Sender: FDA-Public Use
  Company Number: MEDI-0005738

PATIENT
  Age: 18 Month
  Sex: Male
  Weight: 6 kg

DRUGS (2)
  1. SYNAGIS [Suspect]
     Dates: start: 20051001, end: 20070308
  2. SYNAGIS [Suspect]
     Dates: start: 20051001

REACTIONS (3)
  - ARTHRALGIA [None]
  - DERMO-HYPODERMITIS [None]
  - INFLUENZA [None]
